FAERS Safety Report 6271030-2 (Version None)
Quarter: 2009Q3

REPORT INFORMATION
  Report Type: 
  Country: None (occurrence: None)
  Receive Date: 20090716
  Receipt Date: 20090706
  Transmission Date: 20100115
  Serious: Yes (Hospitalization)
  Sender: FDA-Public Use
  Company Number: US-ELI_LILLY_AND_COMPANY-US200907001180

PATIENT
  Sex: Female

DRUGS (23)
  1. CYMBALTA [Suspect]
     Indication: FIBROMYALGIA
     Dosage: 60 MG, UNK
     Dates: end: 20080201
  2. CYMBALTA [Suspect]
     Dosage: 20 MG, UNK
     Dates: start: 20090701
  3. LYRICA [Concomitant]
     Dosage: UNK, UNK
     Dates: end: 20071101
  4. SKELAXIN [Concomitant]
     Dosage: 800 MG, EACH EVENING
     Route: 048
  5. SKELAXIN [Concomitant]
     Dosage: 400 MG, EACH EVENING
     Route: 048
  6. ULTRAM [Concomitant]
     Dosage: 50 MG, UNK
  7. IBUPROFEN [Concomitant]
     Dosage: 400 MG, EVERY 4 HRS
  8. IBUPROFEN [Concomitant]
     Dosage: 400 MG, EVERY 6 HRS
  9. NEXIUM [Concomitant]
     Dosage: 40 MG, UNK
  10. LEVOTHYROXINE SODIUM [Concomitant]
     Dosage: 150 UG, UNK
  11. PROVIGIL [Concomitant]
     Dosage: 200 MG, 2/D
  12. VITAMIN D [Concomitant]
     Dosage: 50000 IU, UNK
  13. VESICARE [Concomitant]
  14. BENTYL [Concomitant]
     Dosage: 20 MG, UNK
  15. PROCHLORPERAZINE [Concomitant]
     Dosage: 10 MG, AS NEEDED
  16. HYDROCHLOROTHIAZIDE [Concomitant]
     Dosage: 25 MG, AS NEEDED
  17. WELCHOL [Concomitant]
     Dosage: 2500 MG, UNK
  18. CALCIUM CITRATE WITH VITAMIN D [Concomitant]
     Dosage: 630 MG, UNK
  19. GLUCOSAMINE /CHOND /03040701/ [Concomitant]
     Dosage: 2 D/F, DAILY (1/D)
  20. VITAMINS [Concomitant]
     Dosage: UNK, 3/D
  21. L-CARNITINE [Concomitant]
     Dosage: 500 MG, 2/D
  22. COENZYME Q10 [Concomitant]
     Dosage: 50 MG, UNK
  23. TYLENOL ARTHRITIS FORMULA [Concomitant]
     Dosage: 650 MG, 2/D

REACTIONS (9)
  - ABDOMINAL PAIN UPPER [None]
  - CELLULITIS [None]
  - DIZZINESS [None]
  - DRUG INEFFECTIVE [None]
  - FLUID RETENTION [None]
  - HAEMORRHAGE [None]
  - HOSPITALISATION [None]
  - MOTION SICKNESS [None]
  - NAUSEA [None]
